FAERS Safety Report 9477051 (Version 1)
Quarter: 2013Q3

REPORT INFORMATION
  Report Type: Spontaneous
  Country: US (occurrence: US)
  Receive Date: 20130826
  Receipt Date: 20130826
  Transmission Date: 20140515
  Serious: Yes (Other)
  Sender: FDA-Public Use
  Company Number: US-BAYER-2013-101902

PATIENT
  Age: 31 Year
  Sex: Female

DRUGS (7)
  1. YASMIN [Suspect]
  2. ADDERALL [Concomitant]
  3. HYDROCHLOROTHIAZIDE [Concomitant]
  4. OMEPRAZOLE [Concomitant]
  5. SUCRALFATE [Concomitant]
  6. VICODIN [Concomitant]
  7. IBUPROFEN [Concomitant]

REACTIONS (1)
  - Thrombophlebitis superficial [None]
